FAERS Safety Report 21274218 (Version 1)
Quarter: 2022Q3

REPORT INFORMATION
  Report Type: Spontaneous
  Country: CN (occurrence: CN)
  Receive Date: 20220831
  Receipt Date: 20220831
  Transmission Date: 20221027
  Serious: Yes (Other)
  Sender: FDA-Public Use
  Company Number: CN-PFIZER INC-PV202200051812

PATIENT
  Age: 10 Year
  Sex: Male
  Weight: 33 kg

DRUGS (1)
  1. CYTARABINE [Suspect]
     Active Substance: CYTARABINE
     Indication: Acute myeloid leukaemia
     Dosage: 2200 MG, ONCE EVERY 12 HOURS
     Route: 041
     Dates: start: 20220805, end: 20220807

REACTIONS (3)
  - Rash erythematous [Recovering/Resolving]
  - Pruritus [Recovering/Resolving]
  - Hypersensitivity [Recovering/Resolving]

NARRATIVE: CASE EVENT DATE: 20220807
